FAERS Safety Report 9199983 (Version 2)
Quarter: 2013Q2

REPORT INFORMATION
  Report Type: Report from Study
  Country: BR (occurrence: BR)
  Receive Date: 20130329
  Receipt Date: 20130419
  Transmission Date: 20140414
  Serious: Yes (Hospitalization)
  Sender: FDA-Public Use
  Company Number: BR-ABBOTT-13P-020-1068991-00

PATIENT
  Age: 60 Year
  Sex: Female
  Weight: 74 kg

DRUGS (18)
  1. HUMIRA [Suspect]
     Indication: RHEUMATOID ARTHRITIS
     Route: 058
     Dates: start: 20120710
  2. FELDENE [Suspect]
     Indication: PRODUCT USED FOR UNKNOWN INDICATION
  3. PREDNISONE [Suspect]
     Indication: HYPERSENSITIVITY
  4. HYDROCHLOROTHIAZIDE [Concomitant]
     Indication: HYPERTENSION
     Route: 048
     Dates: start: 2000
  5. LOSARTAN [Concomitant]
     Indication: HYPERTENSION
     Route: 048
     Dates: start: 2012
  6. LEVOTHYROXINE SODIUM [Concomitant]
     Indication: THYROID DISORDER
     Route: 048
     Dates: start: 2000
  7. CARBAMAZEPINE [Concomitant]
     Indication: NERVOUSNESS
     Dosage: 400 MG DAILY
     Route: 048
     Dates: start: 2000
  8. OMEPRAZOLE [Concomitant]
     Indication: HYPERCHLORHYDRIA
     Route: 048
     Dates: start: 2000
  9. PHENOBARBITAL [Concomitant]
     Indication: NERVOUS SYSTEM DISORDER
     Route: 048
     Dates: start: 2000
  10. PHENYTOIN [Concomitant]
     Indication: CONVULSION
     Route: 048
     Dates: start: 2000
  11. PHENYTOIN [Concomitant]
     Indication: PROPHYLAXIS
  12. SERTRALIN [Concomitant]
     Indication: AFFECT LABILITY
     Route: 048
     Dates: start: 2000
  13. ATORVASTATIN [Concomitant]
     Indication: BLOOD CHOLESTEROL ABNORMAL
     Route: 048
     Dates: start: 2000, end: 201302
  14. CLONAZEPAM [Concomitant]
     Indication: CONVULSION
     Dosage: 15 DROPS DAILY; AT NIGHT
     Route: 048
     Dates: start: 2001
  15. AMPLICTIL [Concomitant]
     Indication: CONVULSION
     Dosage: EVENTUALY
     Route: 048
  16. VERTIGIUM [Concomitant]
     Indication: DIZZINESS
  17. TRAMAL [Concomitant]
     Indication: ARTHRALGIA
  18. DOXEPIN [Concomitant]
     Indication: HYPERSENSITIVITY
     Dates: start: 201204

REACTIONS (3)
  - Haemorrhoids [Unknown]
  - Breast cancer [Unknown]
  - Hypersensitivity [Unknown]
